FAERS Safety Report 10013401 (Version 2)
Quarter: 2014Q1

REPORT INFORMATION
  Report Type: Spontaneous
  Country: US (occurrence: US)
  Receive Date: 20140314
  Receipt Date: 20140328
  Transmission Date: 20141002
  Serious: No
  Sender: FDA-Public Use
  Company Number: US-PFIZER INC-2014074063

PATIENT
  Age: 60 Year
  Sex: Female
  Weight: 90.7 kg

DRUGS (3)
  1. VENLAFAXINE HCL [Suspect]
     Indication: MAJOR DEPRESSION
     Dosage: 150 MG, 2X/DAY
  2. ATENOLOL [Concomitant]
     Indication: ARRHYTHMIA
     Dosage: 0.25 MG, DAILY
  3. LEVOTHYROXINE [Concomitant]
     Indication: HYPOTHYROIDISM
     Dosage: 112 UG, DAILY

REACTIONS (3)
  - Heart rate increased [Recovered/Resolved]
  - Hypotension [Unknown]
  - Dehydration [Unknown]
